FAERS Safety Report 20394511 (Version 1)
Quarter: 2022Q1

REPORT INFORMATION
  Report Type: Spontaneous
  Country: FR (occurrence: FR)
  Receive Date: 20220129
  Receipt Date: 20220129
  Transmission Date: 20220424
  Serious: Yes (Congenital Anomaly)
  Sender: FDA-Public Use
  Company Number: None

PATIENT

DRUGS (6)
  1. CETIRIZINE [Suspect]
     Active Substance: CETIRIZINE HYDROCHLORIDE
     Indication: Foetal exposure during pregnancy
     Dosage: 10 MG, QD
     Route: 064
     Dates: start: 20210806
  2. BUDESONIDE\FORMOTEROL FUMARATE [Suspect]
     Active Substance: BUDESONIDE\FORMOTEROL FUMARATE
     Indication: Foetal exposure during pregnancy
     Dosage: UNK (400MICROG/12MICROG/JOUR)
     Route: 064
     Dates: start: 20210609, end: 20210801
  3. BILASTINE [Suspect]
     Active Substance: BILASTINE
     Indication: Foetal exposure during pregnancy
     Dosage: 10 MG, QD
     Route: 064
     Dates: start: 20210609
  4. BECLOMETHASONE [Suspect]
     Active Substance: BECLOMETHASONE
     Indication: Foetal exposure during pregnancy
     Dosage: UNK (200 MICROG/JOUR)
     Route: 064
     Dates: start: 20210609
  5. SINGULAIR [Suspect]
     Active Substance: MONTELUKAST SODIUM
     Indication: Foetal exposure during pregnancy
     Dosage: 10 MG, QD
     Route: 064
     Dates: start: 20210609
  6. PREDNISOLONE SODIUM METAZOATE [Suspect]
     Active Substance: PREDNISOLONE SODIUM METAZOATE
     Indication: Foetal exposure during pregnancy
     Dosage: 60 MG, QD
     Route: 064
     Dates: start: 20210804, end: 20210807

REACTIONS (4)
  - Cystic lymphangioma [Not Recovered/Not Resolved]
  - Spine malformation [Not Recovered/Not Resolved]
  - Microphthalmos [Not Recovered/Not Resolved]
  - Foetal malformation [Not Recovered/Not Resolved]

NARRATIVE: CASE EVENT DATE: 20210927
